FAERS Safety Report 16355657 (Version 4)
Quarter: 2019Q2

REPORT INFORMATION
  Report Type: Spontaneous
  Country: US (occurrence: US)
  Receive Date: 20190525
  Receipt Date: 20190628
  Transmission Date: 20190711
  Serious: No
  Sender: FDA-Public Use
  Company Number: US-UNITED THERAPEUTICS-UNT-2019-009112

PATIENT
  Sex: Male
  Weight: 83.9 kg

DRUGS (7)
  1. REMODULIN [Suspect]
     Active Substance: TREPROSTINIL
     Dosage: 0.008 ?G/KG, CONTINUING
     Route: 041
     Dates: start: 20190328
  2. REMODULIN [Suspect]
     Active Substance: TREPROSTINIL
     Dosage: 0.0075 ?G/KG, CONTINUING
     Route: 041
  3. REMODULIN [Suspect]
     Active Substance: TREPROSTINIL
     Dosage: 0.0065 ?G/KG, CONTINUING
     Route: 041
  4. ADEMPAS [Suspect]
     Active Substance: RIOCIGUAT
     Indication: PRODUCT USED FOR UNKNOWN INDICATION
     Dosage: 1 MG, TID
     Route: 065
  5. ESBRIET [Suspect]
     Active Substance: PIRFENIDONE
     Indication: PRODUCT USED FOR UNKNOWN INDICATION
     Dosage: 3 DF, TID
     Route: 065
  6. REMODULIN [Suspect]
     Active Substance: TREPROSTINIL
     Dosage: 0.007 ?G/KG, CONTINUING
     Route: 041
  7. REMODULIN [Suspect]
     Active Substance: TREPROSTINIL
     Indication: PULMONARY ARTERIAL HYPERTENSION
     Dosage: 0.0085 ?G/KG, CONTINUING
     Route: 041

REACTIONS (3)
  - Dyspnoea [Not Recovered/Not Resolved]
  - Oxygen saturation decreased [Not Recovered/Not Resolved]
  - Headache [Not Recovered/Not Resolved]
